FAERS Safety Report 11218033 (Version 1)
Quarter: 2015Q2

REPORT INFORMATION
  Report Type: Spontaneous
  Country: US (occurrence: None)
  Receive Date: 20150624
  Receipt Date: 20150624
  Transmission Date: 20150821
  Serious: Yes (Life-Threatening, Hospitalization)
  Sender: FDA-Public Use
  Company Number: None

PATIENT
  Age: 54 Year
  Sex: Male
  Weight: 77.1 kg

DRUGS (6)
  1. DAPAGLIFLOZIN [Suspect]
     Active Substance: DAPAGLIFLOZIN
     Indication: TYPE 2 DIABETES MELLITUS
     Route: 048
  2. AMLODIPINE [Concomitant]
     Active Substance: AMLODIPINE BESYLATE
  3. ATORVASTATIN 20 MG [Concomitant]
     Active Substance: ATORVASTATIN
  4. ONDANSETRON ODT 4 MG [Concomitant]
  5. OMEPRAZOLE 20 MG [Concomitant]
     Active Substance: OMEPRAZOLE
  6. RAMIPRIL 10 MG (RAMIPRIL) UNKNOWN, 10 MG [Concomitant]
     Active Substance: RAMIPRIL

REACTIONS (6)
  - Hyponatraemia [None]
  - Diabetic ketoacidosis [None]
  - Tachycardia [None]
  - Hyperglycaemia [None]
  - Metabolic acidosis [None]
  - Vomiting [None]

NARRATIVE: CASE EVENT DATE: 20150623
